FAERS Safety Report 8835799 (Version 1)
Quarter: 2012Q4

REPORT INFORMATION
  Report Type: 
  Country: HU (occurrence: HU)
  Receive Date: 20121011
  Receipt Date: 20121011
  Transmission Date: 20130627
  Serious: Yes (Other)
  Sender: FDA-Public Use
  Company Number: HU-PFIZER INC-2012248402

PATIENT
  Age: 61 Year
  Sex: Female
  Weight: 75 kg

DRUGS (9)
  1. XALATAN [Suspect]
     Indication: GLAUCOMA
     Dosage: 1 Gtt, 1x/day
     Dates: start: 2007
  2. TRITACE [Concomitant]
     Dosage: UNK
     Dates: start: 2007
  3. TRITACE HCT [Concomitant]
     Dosage: UNK
     Dates: start: 2007
  4. NEBISPES [Concomitant]
     Dosage: UNK
     Dates: start: 2007
  5. ATORVA TEVA [Concomitant]
     Dosage: UNK
     Dates: start: 2007
  6. ASPIRIN PROTECT [Concomitant]
     Dosage: UNK
     Dates: start: 2007
  7. CLOPIDOGREL [Concomitant]
     Dosage: UNK
     Dates: start: 2007
  8. NOLPAZA [Concomitant]
     Dosage: UNK
     Dates: start: 2011
  9. Q10 [Concomitant]
     Dosage: UNK
     Dates: start: 2009

REACTIONS (1)
  - Visual impairment [Not Recovered/Not Resolved]
